FAERS Safety Report 9507227 (Version 1)
Quarter: 2013Q3

REPORT INFORMATION
  Report Type: Spontaneous
  Country: DE (occurrence: DE)
  Receive Date: 20130909
  Receipt Date: 20130909
  Transmission Date: 20140515
  Serious: Yes (Other)
  Sender: FDA-Public Use
  Company Number: GXKR2013DE002918

PATIENT
  Sex: 0

DRUGS (2)
  1. CLOZAPINE [Suspect]
  2. QUETIAPINE [Suspect]
     Indication: SCHIZOPHRENIA, PARANOID TYPE
     Dosage: 500 MG, UNK
     Route: 048
     Dates: start: 201208

REACTIONS (1)
  - Granulocytopenia [Not Recovered/Not Resolved]
